FAERS Safety Report 8493198-X (Version None)
Quarter: 2012Q3

REPORT INFORMATION
  Report Type: 
  Country: None (occurrence: None)
  Receive Date: 20120706
  Receipt Date: 20120703
  Transmission Date: 20120928
  Serious: Yes (Other)
  Sender: FDA-Public Use
  Company Number: AR-AMGEN-ARGCT2012024966

PATIENT
  Age: 78 Year
  Sex: Female

DRUGS (7)
  1. ATORVASTATIN [Concomitant]
     Dosage: 10 MG, QOD
     Route: 048
     Dates: start: 20020101
  2. ASPIRIN [Concomitant]
     Dosage: UNK
     Route: 048
     Dates: start: 19980101
  3. MAGNESIUM CHLORIDE [Concomitant]
     Dosage: 0.495 MG, QD
     Route: 048
     Dates: start: 20020501
  4. AMOXICILLIN [Concomitant]
     Dosage: 1 G, Q12H
     Dates: start: 20111201, end: 20120213
  5. LEVOTHYROXINE SODIUM [Concomitant]
     Dosage: 25 MUG, QD
     Route: 048
     Dates: start: 20070823
  6. DENOSUMAB [Suspect]
     Indication: OSTEOPOROSIS POSTMENOPAUSAL
     Dosage: 60 MG, Q6MO
     Route: 058
     Dates: start: 20080422, end: 20111005
  7. DIUREX [Concomitant]
     Dosage: 12.5 MG, UNK
     Route: 048
     Dates: start: 20110615

REACTIONS (1)
  - NECK MASS [None]
